FAERS Safety Report 16611226 (Version 1)
Quarter: 2019Q3

REPORT INFORMATION
  Report Type: Spontaneous
  Country: US (occurrence: US)
  Receive Date: 20190722
  Receipt Date: 20190722
  Transmission Date: 20191004
  Serious: No
  Sender: FDA-Public Use
  Company Number: US-SA-2019SA197145

PATIENT
  Age: 23 Year
  Sex: Female

DRUGS (1)
  1. LUMIZYME [Suspect]
     Active Substance: ALGLUCOSIDASE ALFA
     Indication: GLYCOGEN STORAGE DISEASE TYPE I
     Dosage: 1500 MG, QW
     Route: 042
     Dates: start: 201907

REACTIONS (2)
  - Off label use [Unknown]
  - Disease progression [Unknown]
